FAERS Safety Report 5034189-0 (Version None)
Quarter: 2006Q2

REPORT INFORMATION
  Report Type: 
  Country: None (occurrence: None)
  Receive Date: 20060626
  Receipt Date: 20060622
  Transmission Date: 20061013
  Serious: Yes (Hospitalization)
  Sender: FDA-Public Use
  Company Number: US-GLAXOSMITHKLINE-A0610031A

PATIENT
  Age: 58 Year
  Sex: Male

DRUGS (1)
  1. BECONASE [Suspect]
     Dosage: 42MCG PER DAY
     Route: 045

REACTIONS (1)
  - COLLAPSE OF LUNG [None]
